FAERS Safety Report 20654603 (Version 1)
Quarter: 2022Q1

REPORT INFORMATION
  Report Type: Report from Study
  Country: US (occurrence: US)
  Receive Date: 20220330
  Receipt Date: 20220330
  Transmission Date: 20220423
  Serious: Yes (Hospitalization, Other)
  Sender: FDA-Public Use
  Company Number: US-TAKEDA-2021TUS057729

PATIENT
  Age: 18 Year
  Sex: Female

DRUGS (19)
  1. TEDUGLUTIDE [Suspect]
     Active Substance: TEDUGLUTIDE
     Indication: Short-bowel syndrome
     Dosage: 2 MILLIGRAM, QD
     Route: 058
     Dates: start: 20210820
  2. TEDUGLUTIDE [Suspect]
     Active Substance: TEDUGLUTIDE
     Indication: Short-bowel syndrome
     Dosage: 2 MILLIGRAM, QD
     Route: 058
     Dates: start: 20210820
  3. TEDUGLUTIDE [Suspect]
     Active Substance: TEDUGLUTIDE
     Indication: Short-bowel syndrome
     Dosage: 2 MILLIGRAM, QD
     Route: 058
     Dates: start: 20210820
  4. TEDUGLUTIDE [Suspect]
     Active Substance: TEDUGLUTIDE
     Indication: Short-bowel syndrome
     Dosage: 2 MILLIGRAM, QD
     Route: 058
     Dates: start: 20210820
  5. TEDUGLUTIDE [Suspect]
     Active Substance: TEDUGLUTIDE
     Dosage: 2.05 MILLIGRAM, QD
     Route: 058
     Dates: start: 202108
  6. TEDUGLUTIDE [Suspect]
     Active Substance: TEDUGLUTIDE
     Dosage: 2.05 MILLIGRAM, QD
     Route: 058
     Dates: start: 202108
  7. TEDUGLUTIDE [Suspect]
     Active Substance: TEDUGLUTIDE
     Dosage: 2.05 MILLIGRAM, QD
     Route: 058
     Dates: start: 202108
  8. TEDUGLUTIDE [Suspect]
     Active Substance: TEDUGLUTIDE
     Dosage: 2.05 MILLIGRAM, QD
     Route: 058
     Dates: start: 202108
  9. TEDUGLUTIDE [Suspect]
     Active Substance: TEDUGLUTIDE
     Dosage: 2.05 MILLIGRAM, QD
     Route: 058
     Dates: start: 20210820
  10. TEDUGLUTIDE [Suspect]
     Active Substance: TEDUGLUTIDE
     Dosage: 2.05 MILLIGRAM, QD
     Route: 058
     Dates: start: 20210820
  11. TEDUGLUTIDE [Suspect]
     Active Substance: TEDUGLUTIDE
     Dosage: 2.05 MILLIGRAM, QD
     Route: 058
     Dates: start: 20210820
  12. TEDUGLUTIDE [Suspect]
     Active Substance: TEDUGLUTIDE
     Dosage: 2.05 MILLIGRAM, QD
     Route: 058
     Dates: start: 20210820
  13. CETIRIZINE [Concomitant]
     Active Substance: CETIRIZINE HYDROCHLORIDE
     Dosage: 2 MILLIGRAM, QD
     Route: 065
  14. VITAMIN D3 [Concomitant]
     Active Substance: CHOLECALCIFEROL
     Dosage: 50 MILLIGRAM, QD
     Route: 065
  15. FERSOLATE [Concomitant]
     Route: 065
  16. FLUCONAZOLE [Concomitant]
     Active Substance: FLUCONAZOLE
     Route: 065
  17. FLUVOXAMINE [Concomitant]
     Active Substance: FLUVOXAMINE
     Dosage: 20 GRAM, QD
     Route: 065
  18. LOPERMIDE [Concomitant]
     Dosage: 2 MILLIGRAM, QD
     Route: 065
  19. PANTOPRAZOLE [Concomitant]
     Active Substance: PANTOPRAZOLE
     Dosage: 20 MILLIGRAM, QD
     Route: 065

REACTIONS (14)
  - Haematochezia [Unknown]
  - Abscess intestinal [Unknown]
  - Weight decreased [Unknown]
  - Vitamin D abnormal [Unknown]
  - Blood iron abnormal [Unknown]
  - Haemoglobin abnormal [Unknown]
  - Blood calcium decreased [Unknown]
  - Blood iron decreased [Unknown]
  - Injection site mass [Unknown]
  - Abnormal faeces [Unknown]
  - Abdominal distension [Recovered/Resolved]
  - Abdominal pain [Recovered/Resolved]
  - Injection site bruising [Unknown]
  - Product dose omission issue [Unknown]

NARRATIVE: CASE EVENT DATE: 20210828
